FAERS Safety Report 7777221-3 (Version None)
Quarter: 2011Q3

REPORT INFORMATION
  Report Type: 
  Country: None (occurrence: None)
  Receive Date: 20110926
  Receipt Date: 20110914
  Transmission Date: 20111222
  Serious: Yes (Hospitalization, Other)
  Sender: FDA-Public Use
  Company Number: PHHY2011JP69092

PATIENT
  Age: 46 Year
  Sex: Female

DRUGS (1)
  1. NEORAL [Suspect]
     Indication: APLASIA PURE RED CELL
     Dosage: 125 MG, UNK
     Route: 048
     Dates: start: 20051101

REACTIONS (4)
  - GASTRITIS EROSIVE [None]
  - DECREASED APPETITE [None]
  - WEIGHT DECREASED [None]
  - BLOOD ALBUMIN DECREASED [None]
